FAERS Safety Report 6271029-6 (Version None)
Quarter: 2009Q3

REPORT INFORMATION
  Report Type: 
  Country: None (occurrence: None)
  Receive Date: 20090716
  Receipt Date: 20090706
  Transmission Date: 20100115
  Serious: Yes (Hospitalization, Other)
  Sender: FDA-Public Use
  Company Number: US-ELI_LILLY_AND_COMPANY-US200907001608

PATIENT
  Sex: Female

DRUGS (5)
  1. CYMBALTA [Suspect]
     Indication: PAIN
     Dosage: 60 MG, UNK
     Dates: end: 20090601
  2. CYMBALTA [Suspect]
     Dosage: 1800 MG, OTHER: OVER 6 DAYS
  3. LEXAPRO [Concomitant]
  4. HYDROCODONE [Concomitant]
  5. RITALIN [Concomitant]

REACTIONS (3)
  - HYPOTENSION [None]
  - INTENTIONAL OVERDOSE [None]
  - OFF LABEL USE [None]
